FAERS Safety Report 5464307-1 (Version None)
Quarter: 2007Q3

REPORT INFORMATION
  Report Type: 
  Country: None (occurrence: None)
  Receive Date: 20070921
  Receipt Date: 20070913
  Transmission Date: 20080115
  Serious: Yes (Other)
  Sender: FDA-Public Use
  Company Number: B0487892A

PATIENT
  Age: 67 Year
  Sex: Male
  Weight: 77.5 kg

DRUGS (5)
  1. ROSIGLITAZONE MALEATE [Suspect]
     Route: 048
     Dates: start: 20070625, end: 20070831
  2. ASPIRIN [Concomitant]
     Dates: start: 19990609
  3. METFORMIN [Concomitant]
     Dates: end: 20070730
  4. METOPROLOL TARTRATE [Concomitant]
     Dates: start: 19980914
  5. PRAVASTATIN [Concomitant]
     Dates: start: 20011115

REACTIONS (1)
  - ANGINA PECTORIS [None]
